FAERS Safety Report 21959919 (Version 1)
Quarter: 2023Q1

REPORT INFORMATION
  Report Type: Spontaneous
  Country: NL (occurrence: NL)
  Receive Date: 20230206
  Receipt Date: 20230206
  Transmission Date: 20230418
  Serious: Yes (Hospitalization)
  Sender: FDA-Public Use
  Company Number: NL-LRB-00862508

PATIENT
  Sex: Female
  Weight: 82 kg

DRUGS (2)
  1. PREGABALIN [Suspect]
     Active Substance: PREGABALIN
     Indication: Neuralgia
     Dosage: 150 MILLIGRAM, DAILY
     Route: 065
     Dates: start: 20210101
  2. FENTANYL TRANSDERMAL SYSTEM [Suspect]
     Active Substance: FENTANYL
     Indication: Back pain
     Dosage: 1 DOSAGE FORM, DAILY
     Route: 065
     Dates: start: 20221201

REACTIONS (2)
  - Coordination abnormal [Recovering/Resolving]
  - Fall [Recovering/Resolving]
